FAERS Safety Report 5332980-4 (Version None)
Quarter: 2007Q2

REPORT INFORMATION
  Report Type: 
  Country: None (occurrence: None)
  Receive Date: 20070306
  Receipt Date: 20060508
  Transmission Date: 20071010
  Serious: Yes (Other)
  Sender: FDA-Public Use
  Company Number: A03200402075

PATIENT
  Age: 74 Year
  Sex: Female
  Weight: 56.6996 kg

DRUGS (3)
  1. PLAVIX [Suspect]
     Indication: CEREBROVASCULAR ACCIDENT
     Dosage: 75 MG QD - ORAL
     Route: 048
     Dates: start: 20030101, end: 20060401
  2. PLAVIX [Suspect]
     Indication: CEREBROVASCULAR ACCIDENT
     Dosage: 75 MG QD - ORAL
     Route: 048
     Dates: start: 20060401
  3. ATENOLOL [Concomitant]

REACTIONS (6)
  - CONTUSION [None]
  - HAEMATURIA [None]
  - LARGE INTESTINAL HAEMORRHAGE [None]
  - PLATELET COUNT DECREASED [None]
  - RASH MACULAR [None]
  - SKIN EXFOLIATION [None]
